FAERS Safety Report 25918019 (Version 2)
Quarter: 2025Q4

REPORT INFORMATION
  Report Type: Spontaneous
  Country: US (occurrence: US)
  Receive Date: 20251014
  Receipt Date: 20251024
  Transmission Date: 20260117
  Serious: Yes (Hospitalization, Other)
  Sender: ADVANZ PHARMA
  Company Number: US-MLMSERVICE-20250925-PI658393-00095-2

PATIENT

DRUGS (1)
  1. HYDROXYCHLOROQUINE [Suspect]
     Active Substance: HYDROXYCHLOROQUINE
     Indication: Rheumatoid arthritis
     Dosage: 3.6 MG/KG, CONSISTENTLY FOR MORE THAN 10 YEARS
     Route: 065

REACTIONS (13)
  - Sinus tachycardia [Unknown]
  - Periorbital haematoma [Unknown]
  - Skull fractured base [Unknown]
  - Blood magnesium decreased [Unknown]
  - Palpitations [Unknown]
  - Vision blurred [Unknown]
  - Ejection fraction decreased [Recovered/Resolved]
  - Aspartate aminotransferase increased [Unknown]
  - Electrocardiogram QT prolonged [Recovered/Resolved]
  - Atrioventricular block second degree [Recovered/Resolved]
  - Toxicity to various agents [Unknown]
  - Ventricular tachycardia [Recovered/Resolved]
  - Dizziness [Unknown]
